FAERS Safety Report 6503704-X (Version None)
Quarter: 2009Q4

REPORT INFORMATION
  Report Type: 
  Country: None (occurrence: None)
  Receive Date: 20091216
  Receipt Date: 20091216
  Transmission Date: 20100525
  Serious: Yes (Other)
  Sender: FDA-Public Use
  Company Number: None

PATIENT
  Sex: Male

DRUGS (2)
  1. KEPPRA [Suspect]
     Indication: ADDISON'S DISEASE
     Dosage: 500
     Dates: start: 20090416
  2. KEPPRA [Suspect]
     Indication: CONVULSION
     Dosage: 500
     Dates: start: 20090416

REACTIONS (1)
  - BLOOD SODIUM ABNORMAL [None]
